FAERS Safety Report 15489882 (Version 1)
Quarter: 2018Q4

REPORT INFORMATION
  Report Type: Spontaneous
  Country: US (occurrence: US)
  Receive Date: 20181011
  Receipt Date: 20181011
  Transmission Date: 20190205
  Serious: No
  Sender: FDA-Public Use
  Company Number: US-OPTINOSE US, INC.-US-2018OPT000167

PATIENT
  Age: 57 Year
  Sex: Female

DRUGS (1)
  1. XHANCE [Suspect]
     Active Substance: FLUTICASONE PROPIONATE
     Indication: VASOMOTOR RHINITIS
     Dosage: 186 MCG - 372 MCG (1-2 SPRAYS EACH NOSTRIL), BID
     Route: 045
     Dates: start: 2018

REACTIONS (5)
  - Epistaxis [Unknown]
  - Nasal ulcer [Unknown]
  - Oropharyngeal pain [Unknown]
  - Product use in unapproved indication [Unknown]
  - Oropharyngeal discolouration [Unknown]

NARRATIVE: CASE EVENT DATE: 2018
